FAERS Safety Report 20438413 (Version 1)
Quarter: 2022Q1

REPORT INFORMATION
  Report Type: Spontaneous
  Country: US (occurrence: US)
  Receive Date: 20220207
  Receipt Date: 20220207
  Transmission Date: 20220424
  Serious: Yes (Hospitalization)
  Sender: FDA-Public Use
  Company Number: US-PFIZER INC-202200175584

PATIENT
  Age: 55 Year
  Sex: Male
  Weight: 108.8 kg

DRUGS (19)
  1. REVATIO [Suspect]
     Active Substance: SILDENAFIL CITRATE
     Dosage: 20 MG
  2. LIPITOR [Suspect]
     Active Substance: ATORVASTATIN CALCIUM
     Dosage: 20 MG
  3. REMODULIN [Suspect]
     Active Substance: TREPROSTINIL
     Indication: Pulmonary arterial hypertension
     Dosage: 0.048 UG/KG
     Route: 041
     Dates: start: 20201013
  4. REMODULIN [Suspect]
     Active Substance: TREPROSTINIL
     Dosage: 0.050 UG/KG
     Route: 041
  5. ETHYL ALCOHOL [Suspect]
     Active Substance: ALCOHOL
     Dosage: UNK
  6. LASIX [Suspect]
     Active Substance: FUROSEMIDE
     Dosage: 40 MG, DAILY (BEFORE SUPPER AT 4PM)
     Route: 048
  7. OPSUMIT [Concomitant]
     Active Substance: MACITENTAN
     Dosage: 10 MG
  8. WARFARIN SODIUM [Concomitant]
     Active Substance: WARFARIN SODIUM
     Dosage: 3 MG
  9. VITAMIN B1 [THIAMINE MONONITRATE] [Concomitant]
     Dosage: 100 MG
  10. K-DUR [Concomitant]
     Active Substance: POTASSIUM CHLORIDE
     Dosage: UNKNOWN
  11. PROTONIX [Concomitant]
     Active Substance: PANTOPRAZOLE SODIUM
     Dosage: 40 MG
  12. ZOFRAN [Concomitant]
     Active Substance: ONDANSETRON HYDROCHLORIDE
     Dosage: 8 MG
  13. MAGNESIUM OXIDE [Concomitant]
     Active Substance: MAGNESIUM OXIDE
     Dosage: 250 MG
  14. MAGNESIUM LACTATE [Concomitant]
     Active Substance: MAGNESIUM LACTATE
     Dosage: 84 MG
  15. ATIVAN [Concomitant]
     Active Substance: LORAZEPAM
     Dosage: 0.5 MG
  16. FOLIC ACID [Concomitant]
     Active Substance: FOLIC ACID
     Dosage: 1 MG
  17. VITAMIN D3 [Concomitant]
     Active Substance: CHOLECALCIFEROL
     Dosage: 1000 IU
  18. ALBUTEROL SULFATE [Concomitant]
     Active Substance: ALBUTEROL SULFATE
     Dosage: UNK (INHALER)
  19. CARAFATE [Concomitant]
     Active Substance: SUCRALFATE
     Dosage: UNK (SUSPENSION)

REACTIONS (4)
  - Chest pain [Recovered/Resolved]
  - Tachycardia [Recovered/Resolved]
  - Hypokalaemia [Unknown]
  - Blood magnesium decreased [Unknown]

NARRATIVE: CASE EVENT DATE: 20211117
